FAERS Safety Report 11026871 (Version 4)
Quarter: 2015Q2

REPORT INFORMATION
  Report Type: Spontaneous
  Country: US (occurrence: US)
  Receive Date: 20150414
  Receipt Date: 20150521
  Transmission Date: 20150821
  Serious: Yes (Hospitalization)
  Sender: FDA-Public Use
  Company Number: US-BAYER-2015-133572

PATIENT
  Age: 42 Year
  Sex: Female
  Weight: 111.11 kg

DRUGS (1)
  1. MIRENA [Suspect]
     Active Substance: LEVONORGESTREL
     Indication: CONTRACEPTION
     Dosage: 20 MCG/24HR, CONT
     Route: 015
     Dates: start: 20090904, end: 20130826

REACTIONS (11)
  - Embedded device [None]
  - Injury [None]
  - Emotional distress [None]
  - Device issue [None]
  - Pregnancy with contraceptive device [None]
  - Depression [None]
  - Dyspareunia [None]
  - Pain [None]
  - Genital haemorrhage [None]
  - Drug ineffective [None]
  - Anxiety [None]

NARRATIVE: CASE EVENT DATE: 2013
